FAERS Safety Report 11909197 (Version 1)
Quarter: 2016Q1

REPORT INFORMATION
  Report Type: Spontaneous
  Country: US (occurrence: US)
  Receive Date: 20160112
  Receipt Date: 20160112
  Transmission Date: 20160526
  Serious: Yes (Death)
  Sender: FDA-Public Use
  Company Number: US-ROCHE-1692834

PATIENT
  Age: 50 Year
  Sex: Female

DRUGS (5)
  1. GRANISETRON [Concomitant]
     Active Substance: GRANISETRON
     Route: 042
     Dates: start: 20150530, end: 20151104
  2. DEXAMETHASONE. [Concomitant]
     Active Substance: DEXAMETHASONE
     Route: 042
     Dates: start: 20150530, end: 20151104
  3. FLURACIL [Concomitant]
     Active Substance: FLUOROURACIL
     Route: 042
     Dates: start: 20150530, end: 20151104
  4. LEUCOVORIN CA [Concomitant]
     Route: 042
     Dates: start: 20150530, end: 20151104
  5. AVASTIN [Suspect]
     Active Substance: BEVACIZUMAB
     Indication: AUTOIMMUNE DISORDER
     Route: 042
     Dates: start: 20150530, end: 20151104

REACTIONS (1)
  - Death [Fatal]

NARRATIVE: CASE EVENT DATE: 20151104
